FAERS Safety Report 10592463 (Version 2)
Quarter: 2014Q4

REPORT INFORMATION
  Report Type: Spontaneous
  Country: JP (occurrence: JP)
  Receive Date: 20141119
  Receipt Date: 20141204
  Transmission Date: 20150529
  Serious: Yes (Hospitalization, Other)
  Sender: FDA-Public Use
  Company Number: PHHY2014JP148909

PATIENT

DRUGS (1)
  1. ALISKIREN [Suspect]
     Active Substance: ALISKIREN
     Indication: PRODUCT USED FOR UNKNOWN INDICATION
     Dosage: 150 MG, QD
     Route: 048

REACTIONS (7)
  - Sjogren^s syndrome [Unknown]
  - Hypothyroidism [Unknown]
  - Haemolysis [Unknown]
  - Autoimmune thyroiditis [Unknown]
  - Immune thrombocytopenic purpura [Unknown]
  - Polyglandular autoimmune syndrome type III [Unknown]
  - Autoimmune haemolytic anaemia [Unknown]
